FAERS Safety Report 18549219 (Version 1)
Quarter: 2020Q4

REPORT INFORMATION
  Report Type: Spontaneous
  Country: US (occurrence: US)
  Receive Date: 20201126
  Receipt Date: 20201126
  Transmission Date: 20210114
  Serious: Yes (Other)
  Sender: FDA-Public Use
  Company Number: US-CADILA HEALTHCARE LIMITED-US-ZYDUS-058336

PATIENT

DRUGS (7)
  1. METRONIDAZOLE. [Suspect]
     Active Substance: METRONIDAZOLE
     Indication: DIVERTICULITIS
  2. AZTREONAM. [Concomitant]
     Active Substance: AZTREONAM
     Indication: DIVERTICULITIS
  3. LEVETIRACETAM. [Concomitant]
     Active Substance: LEVETIRACETAM
     Indication: SEIZURE
     Dosage: 1000 MILLIGRAM
  4. CIPROFLOXACIN. [Suspect]
     Active Substance: CIPROFLOXACIN
     Indication: ABDOMINAL ABSCESS
     Dosage: 500 MILLIGRAM, BID
     Route: 065
  5. METRONIDAZOLE. [Suspect]
     Active Substance: METRONIDAZOLE
     Indication: ABDOMINAL ABSCESS
     Dosage: 500 MILLIGRAM, BID
     Route: 065
  6. AZTREONAM. [Concomitant]
     Active Substance: AZTREONAM
     Indication: ABDOMINAL ABSCESS
  7. CIPROFLOXACIN. [Suspect]
     Active Substance: CIPROFLOXACIN
     Indication: DIVERTICULITIS

REACTIONS (1)
  - Posterior reversible encephalopathy syndrome [Recovered/Resolved]
